FAERS Safety Report 12998221 (Version 2)
Quarter: 2017Q1

REPORT INFORMATION
  Report Type: Spontaneous
  Country: US (occurrence: US)
  Receive Date: 20161205
  Receipt Date: 20170119
  Transmission Date: 20170428
  Serious: Yes (Other)
  Sender: FDA-Public Use
  Company Number: US-PFIZER INC-2016559097

PATIENT
  Age: 78 Year
  Sex: Female

DRUGS (1)
  1. TIKOSYN [Suspect]
     Active Substance: DOFETILIDE
     Dosage: 2X/DAY (3X125, TWICE A DAY)
     Dates: start: 20160912

REACTIONS (1)
  - Atrial fibrillation [Unknown]
